FAERS Safety Report 9165294 (Version 2)
Quarter: 2013Q1

REPORT INFORMATION
  Report Type: Spontaneous
  Country: US (occurrence: US)
  Receive Date: 20130315
  Receipt Date: 20130325
  Transmission Date: 20140127
  Serious: Yes (Hospitalization, Other)
  Sender: FDA-Public Use
  Company Number: US-ELI_LILLY_AND_COMPANY-US201303002300

PATIENT
  Age: 70 None
  Sex: Female

DRUGS (7)
  1. FORTEO [Suspect]
     Indication: OSTEOPOROSIS
     Dosage: UNK, QD
     Dates: start: 20130209, end: 20130301
  2. PREDNISONE [Concomitant]
     Dosage: 2 MG, QD
  3. NABUMETONE [Concomitant]
     Dosage: 750 MG, BID
  4. LEFLUNOMIDE [Concomitant]
     Dosage: 20 MG, QD
  5. TRAZODONE [Concomitant]
     Dosage: 50 MG, QD
  6. TIZANIDINE [Concomitant]
     Dosage: 2 MG, EACH EVENING
     Dates: end: 20130305
  7. VITAMINS [Concomitant]

REACTIONS (8)
  - Skin cancer [Not Recovered/Not Resolved]
  - Swelling [Unknown]
  - Colitis [Unknown]
  - Bone pain [Unknown]
  - Headache [Unknown]
  - Tachycardia [Recovered/Resolved]
  - Dizziness [Unknown]
  - Dehydration [Unknown]
